FAERS Safety Report 23632043 (Version 1)
Quarter: 2024Q1

REPORT INFORMATION
  Report Type: Spontaneous
  Country: US (occurrence: None)
  Receive Date: 20240313
  Receipt Date: 20240313
  Transmission Date: 20240410
  Serious: No
  Sender: FDA-Public Use
  Company Number: None

PATIENT
  Age: 72 Year
  Sex: Male
  Weight: 69.75 kg

DRUGS (3)
  1. DORZOLAMIDE [Suspect]
     Active Substance: DORZOLAMIDE
     Indication: Glaucoma
     Dates: start: 20240222, end: 20240313
  2. LATANOPROST [Concomitant]
     Active Substance: LATANOPROST
  3. HERBALS\TURMERIC [Concomitant]
     Active Substance: HERBALS\TURMERIC

REACTIONS (3)
  - Dizziness [None]
  - Therapy cessation [None]
  - Impaired driving ability [None]

NARRATIVE: CASE EVENT DATE: 20240313
